FAERS Safety Report 6612107-9 (Version None)
Quarter: 2010Q1

REPORT INFORMATION
  Report Type: 
  Country: None (occurrence: None)
  Receive Date: 20100302
  Receipt Date: 20100302
  Transmission Date: 20100710
  Serious: Yes (Hospitalization)
  Sender: FDA-Public Use
  Company Number: None

PATIENT
  Sex: Female
  Weight: 68.0396 kg

DRUGS (1)
  1. AVELOX [Suspect]
     Indication: PNEUMONIA ASPIRATION
     Dosage: 400 MG Q24H IV BOLUS
     Route: 040
     Dates: start: 20100224, end: 20100225

REACTIONS (2)
  - ELECTROCARDIOGRAM QT PROLONGED [None]
  - HYPOKALAEMIA [None]
